FAERS Safety Report 21889857 (Version 2)
Quarter: 2023Q4

REPORT INFORMATION
  Report Type: Report from Study
  Country: US (occurrence: US)
  Receive Date: 20230120
  Receipt Date: 20231107
  Transmission Date: 20240110
  Serious: No
  Sender: FDA-Public Use
  Company Number: US-ABBVIE-4277032

PATIENT
  Sex: Female

DRUGS (2)
  1. CREON [Suspect]
     Active Substance: PANCRELIPASE AMYLASE\PANCRELIPASE LIPASE\PANCRELIPASE PROTEASE
     Indication: Product used for unknown indication
     Dosage: TIME INTERVAL: 0.33333333 DAYS: DOSAGE: 36000 U 36000 UNIT
     Route: 048
  2. CREON [Suspect]
     Active Substance: PANCRELIPASE AMYLASE\PANCRELIPASE LIPASE\PANCRELIPASE PROTEASE
     Indication: Product used for unknown indication
     Dosage: DOSAGE: 36000 U DELAYED RELEASE ?TAKE TWO CAPSULE BY MOUTH WITH ONE MEAL AND TAKE ONE CAPSULE BY ...
     Route: 048

REACTIONS (3)
  - Thinking abnormal [Unknown]
  - Amnesia [Unknown]
  - Pancreatic disorder [Unknown]
